FAERS Safety Report 7580185-9 (Version None)
Quarter: 2011Q2

REPORT INFORMATION
  Report Type: 
  Country: None (occurrence: None)
  Receive Date: 20110629
  Receipt Date: 20110616
  Transmission Date: 20111010
  Serious: Yes (Hospitalization, Other)
  Sender: FDA-Public Use
  Company Number: US-BAYER-201017028NA

PATIENT
  Age: 21 Year
  Sex: Female
  Weight: 53.968 kg

DRUGS (4)
  1. TRAMADOL HCL [Concomitant]
     Indication: BACK PAIN
     Dosage: UNK
     Dates: start: 20090401
  2. NEXIUM [Concomitant]
     Indication: DYSPEPSIA
     Dosage: UNK
     Dates: start: 20090401
  3. YAZ [Suspect]
     Indication: CONTRACEPTION
     Route: 048
     Dates: start: 20080801, end: 20090901
  4. YASMIN [Suspect]
     Indication: CONTRACEPTION
     Dosage: UNK
     Dates: start: 20080801, end: 20090901

REACTIONS (5)
  - CHOLECYSTITIS [None]
  - BILIARY DYSKINESIA [None]
  - ABDOMINAL PAIN [None]
  - GALLBLADDER DISORDER [None]
  - GALLBLADDER CHOLESTEROLOSIS [None]
